FAERS Safety Report 11825571 (Version 1)
Quarter: 2015Q4

REPORT INFORMATION
  Report Type: Spontaneous
  Country: US (occurrence: US)
  Receive Date: 20151211
  Receipt Date: 20151211
  Transmission Date: 20160305
  Serious: No
  Sender: FDA-Public Use
  Company Number: US-JNJFOC-20150802316

PATIENT
  Age: 58 Year
  Sex: Male

DRUGS (3)
  1. VITAMIN C [Concomitant]
     Active Substance: ASCORBIC ACID
  2. VITAMIN D [Concomitant]
     Active Substance: CHOLECALCIFEROL
  3. IMBRUVICA [Suspect]
     Active Substance: IBRUTINIB
     Indication: LYMPHOMA
     Route: 048
     Dates: start: 20150701, end: 20150810

REACTIONS (5)
  - Immune system disorder [Recovering/Resolving]
  - Off label use [Unknown]
  - Peripheral swelling [Recovered/Resolved]
  - Cytopenia [Unknown]
  - Rash [Unknown]

NARRATIVE: CASE EVENT DATE: 2015
